FAERS Safety Report 9516228 (Version 1)
Quarter: 2013Q3

REPORT INFORMATION
  Report Type: Spontaneous
  Country: JP (occurrence: JP)
  Receive Date: 20130911
  Receipt Date: 20130911
  Transmission Date: 20140515
  Serious: Yes (Hospitalization)
  Sender: FDA-Public Use
  Company Number: PHHY2013JP097089

PATIENT
  Age: 83 Year
  Sex: Male

DRUGS (6)
  1. PREDNISOLONE [Suspect]
     Dosage: 10 MG, UNK
     Dates: start: 201208
  2. PREDNISOLONE [Suspect]
     Dosage: 20 MG, UNK
     Dates: start: 201210
  3. JUVELA N [Concomitant]
     Indication: ERYTHEMA ELEVATUM DIUTINUM
     Route: 048
  4. OPALMON [Concomitant]
     Indication: ERYTHEMA ELEVATUM DIUTINUM
     Route: 048
  5. LECTISOL [Concomitant]
     Indication: ERYTHEMA ELEVATUM DIUTINUM
     Route: 048
  6. MYSER [Concomitant]
     Indication: ERYTHEMA ELEVATUM DIUTINUM
     Route: 061

REACTIONS (6)
  - Kaposi^s sarcoma [Recovering/Resolving]
  - Skin mass [Recovering/Resolving]
  - Skin oedema [Recovering/Resolving]
  - Purpura [Recovering/Resolving]
  - Skin lesion [Recovering/Resolving]
  - Human herpesvirus 8 infection [Recovering/Resolving]
